FAERS Safety Report 8930159 (Version 1)
Quarter: 2012Q4

REPORT INFORMATION
  Report Type: 
  Country: US (occurrence: US)
  Receive Date: 20121128
  Receipt Date: 20121128
  Transmission Date: 20130627
  Serious: Yes (Other)
  Sender: FDA-Public Use
  Company Number: US-INCYTE CORPORATION-2012IN001396

PATIENT
  Age: 67 Year
  Sex: Female
  Weight: 104 kg

DRUGS (3)
  1. JAKAFI [Suspect]
     Indication: MYELOFIBROSIS
     Dosage: 10 mg, bid
     Route: 048
     Dates: start: 20111221
  2. COUMADIN [Concomitant]
  3. LASIX [Concomitant]

REACTIONS (2)
  - Pneumonia [Recovered/Resolved]
  - Weight increased [Unknown]
